FAERS Safety Report 6398261-5 (Version None)
Quarter: 2009Q4

REPORT INFORMATION
  Report Type: 
  Country: None (occurrence: None)
  Receive Date: 20091013
  Receipt Date: 20091008
  Transmission Date: 20100525
  Serious: Yes (Life-Threatening, Hospitalization)
  Sender: FDA-Public Use
  Company Number: AR-ROXANE LABORATORIES, INC.-2009-RO-01033RO

PATIENT
  Age: 71 Year
  Sex: Female
  Weight: 65 kg

DRUGS (6)
  1. CLARITHROMYCIN [Suspect]
     Indication: PNEUMONIA
     Dosage: 1 G
  2. CIPROFLOXACIN HYDROCHLORIDE [Suspect]
     Indication: PNEUMONIA
     Dosage: 1 G
  3. AMIODARONE [Suspect]
     Indication: ATRIAL FIBRILLATION
  4. AMIODARONE [Suspect]
     Indication: VENTRICULAR TACHYCARDIA
     Dosage: 900 MG
  5. AMIODARONE [Suspect]
  6. CEFTRIAXONE [Suspect]
     Indication: PNEUMONIA

REACTIONS (6)
  - BRADYCARDIA [None]
  - DRUG INTERACTION [None]
  - ELECTROCARDIOGRAM QT PROLONGED [None]
  - HAEMODYNAMIC INSTABILITY [None]
  - NODAL ARRHYTHMIA [None]
  - VENTRICULAR TACHYCARDIA [None]
